FAERS Safety Report 5563908-X (Version None)
Quarter: 2007Q4

REPORT INFORMATION
  Report Type: 
  Country: None (occurrence: None)
  Receive Date: 20071217
  Receipt Date: 20071213
  Transmission Date: 20080405
  Serious: Yes (Hospitalization)
  Sender: FDA-Public Use
  Company Number: FR-WYE-H01707407

PATIENT
  Sex: Female

DRUGS (12)
  1. INIPOMP [Suspect]
     Route: 048
     Dates: end: 20070814
  2. FORLAX [Concomitant]
     Indication: CONSTIPATION
     Dosage: ^DF^
     Route: 048
  3. CACIT [Concomitant]
     Dosage: ^DF^
     Route: 048
  4. CORTANCYL [Concomitant]
     Dosage: ^DF^
     Route: 048
  5. COUMADIN [Suspect]
     Indication: ATRIAL FIBRILLATION
     Route: 048
     Dates: end: 20070812
  6. COUMADIN [Suspect]
     Indication: ATRIAL FLUTTER
  7. MOPRAL [Concomitant]
     Dosage: ^DF^
     Route: 048
  8. FOSAVANCE [Concomitant]
     Dosage: UNKNOWN
     Route: 048
  9. DIFFU K [Concomitant]
     Dosage: ^DF^
     Route: 048
  10. EFFERALGAN [Concomitant]
     Dosage: ^DF^
     Route: 048
  11. RAMIPRIL [Suspect]
     Indication: ESSENTIAL HYPERTENSION
     Dosage: ^DF^
     Route: 048
     Dates: end: 20070814
  12. HEMIGOXINE NATIVELLE [Concomitant]
     Dosage: UNKNOWN

REACTIONS (3)
  - FALL [None]
  - HYPONATRAEMIA [None]
  - INTERNATIONAL NORMALISED RATIO INCREASED [None]
